FAERS Safety Report 8544702-4 (Version None)
Quarter: 2012Q3

REPORT INFORMATION
  Report Type: 
  Country: None (occurrence: None)
  Receive Date: 20120727
  Receipt Date: 20120718
  Transmission Date: 20120928
  Serious: Yes (Other)
  Sender: FDA-Public Use
  Company Number: FR-BRISTOL-MYERS SQUIBB COMPANY-16813404

PATIENT
  Sex: Male
  Weight: 3 kg

DRUGS (4)
  1. RISPERDAL [Suspect]
     Dosage: PERIOD OF EXPOSURE: 0-4 ROUTE: 4 IM
     Route: 064
  2. VALIUM [Suspect]
     Route: 064
  3. ABILIFY [Suspect]
     Route: 064
  4. CHLORPROMAZINE HCL [Suspect]
     Route: 064

REACTIONS (1)
  - MACROSOMIA [None]
